FAERS Safety Report 10997606 (Version 1)
Quarter: 2015Q2

REPORT INFORMATION
  Report Type: Spontaneous
  Country: US (occurrence: None)
  Receive Date: 20150407
  Receipt Date: 20150407
  Transmission Date: 20150821
  Serious: Yes (Other)
  Sender: FDA-Public Use
  Company Number: None

PATIENT
  Age: 42 Year
  Sex: Male

DRUGS (1)
  1. SPRYCEL [Suspect]
     Active Substance: DASATINIB
     Indication: MALIGNANT MAST CELL NEOPLASM
     Dosage: 3/19/15 AND STILL TAKING ON 4/3/15, STRENGTH: 70MG, DOSE FORM: ORAL, FREQUENCY: DAILY, ROUTE: ORAL 047
     Route: 048
     Dates: start: 20150319

REACTIONS (3)
  - Headache [None]
  - Arthralgia [None]
  - Myalgia [None]

NARRATIVE: CASE EVENT DATE: 20150327
